FAERS Safety Report 4307892-5 (Version None)
Quarter: 2004Q1

REPORT INFORMATION
  Report Type: 
  Country: None (occurrence: None)
  Receive Date: 20040226
  Receipt Date: 20030324
  Transmission Date: 20041129
  Serious: Yes (Hospitalization, Other)
  Sender: FDA-Public Use
  Company Number: 2003150011US

PATIENT
  Age: 86 Year
  Sex: Female

DRUGS (3)
  1. CELEBREX [Suspect]
     Indication: ARTHRITIS
     Dosage: 200 MG BID ORAL
     Route: 048
     Dates: start: 20020720, end: 20030117
  2. METHYLDOPA [Concomitant]
  3. FLUOXETINE [Concomitant]

REACTIONS (3)
  - ANOREXIA [None]
  - GASTROINTESTINAL HAEMORRHAGE [None]
  - WEIGHT DECREASED [None]
